FAERS Safety Report 17742895 (Version 1)
Quarter: 2020Q2

REPORT INFORMATION
  Report Type: Spontaneous
  Country: NZ (occurrence: NZ)
  Receive Date: 20200504
  Receipt Date: 20200504
  Transmission Date: 20200714
  Serious: Yes (Hospitalization, Other)
  Sender: FDA-Public Use
  Company Number: NVSC2020NZ038498

PATIENT
  Age: 75 Year
  Sex: Male
  Weight: 82 kg

DRUGS (8)
  1. ENTRESTO [Suspect]
     Active Substance: SACUBITRIL\VALSARTAN
     Indication: CARDIAC FAILURE
     Dosage: 50 MG, BID (24/26MG)
     Route: 065
     Dates: start: 20190701
  2. SPIRONOLACTONE. [Concomitant]
     Active Substance: SPIRONOLACTONE
     Indication: PRODUCT USED FOR UNKNOWN INDICATION
     Dosage: 25 MG, QD
     Route: 048
  3. CARVEDIOL [Concomitant]
     Active Substance: CARVEDILOL
     Indication: PRODUCT USED FOR UNKNOWN INDICATION
     Dosage: 25 MG, TID
     Route: 048
  4. CANDESARTAN. [Suspect]
     Active Substance: CANDESARTAN
     Indication: PRODUCT USED FOR UNKNOWN INDICATION
     Dosage: UNK
     Route: 065
  5. ENTRESTO [Suspect]
     Active Substance: SACUBITRIL\VALSARTAN
     Dosage: 50 MG, BID (24/26 MG, DOSE REDUCED)
     Route: 065
     Dates: start: 20191124, end: 201912
  6. FRUSEMIDE [Suspect]
     Active Substance: FUROSEMIDE
     Dosage: UNK (DOSE REDUCED)
     Route: 065
  7. FRUSEMIDE [Suspect]
     Active Substance: FUROSEMIDE
     Indication: PRODUCT USED FOR UNKNOWN INDICATION
     Dosage: 120 MG QD (80 MG MANE, 40 MG AND TITARTION AS REQUIRED)
     Route: 048
  8. ENTRESTO [Suspect]
     Active Substance: SACUBITRIL\VALSARTAN
     Dosage: 100 MG, BID (49/51MG)
     Route: 065
     Dates: start: 20190722, end: 20191124

REACTIONS (14)
  - Cellulitis [Unknown]
  - Dyspnoea [Unknown]
  - Pain in extremity [Unknown]
  - Weight increased [Unknown]
  - Skin ulcer [Unknown]
  - Cardiac failure [Recovered/Resolved with Sequelae]
  - Renal impairment [Unknown]
  - Peripheral swelling [Not Recovered/Not Resolved]
  - Acute kidney injury [Unknown]
  - Arthralgia [Unknown]
  - Dehydration [Unknown]
  - Skin exfoliation [Unknown]
  - Cardiac failure congestive [Unknown]
  - Salmonella bacteraemia [Unknown]

NARRATIVE: CASE EVENT DATE: 20190722
